FAERS Safety Report 6249049-7 (Version None)
Quarter: 2009Q2

REPORT INFORMATION
  Report Type: 
  Country: None (occurrence: None)
  Receive Date: 20090624
  Receipt Date: 20090624
  Transmission Date: 20091009
  Serious: Yes (Other)
  Sender: FDA-Public Use
  Company Number: None

PATIENT
  Age: 28 Year
  Sex: Male
  Weight: 72.5755 kg

DRUGS (2)
  1. FINAFLEX 550XD 2A, 17A DIMETHYL ETIOCHOLAN  3-ONE REDEFINE NUTRITION [Suspect]
     Dosage: 2 CAPS TWICE DAILY PO
     Route: 048
     Dates: start: 20090603, end: 20090606
  2. FINAFLEX RIPPED 1, 4 ANDROSTADIENE-3 REDEFINE NUTRITION [Suspect]
     Indication: BLOOD OESTROGEN INCREASED
     Dosage: 2 CAPS TWICE DAILY PO
     Route: 048
     Dates: start: 20090601, end: 20090606

REACTIONS (1)
  - LIVER DISORDER [None]
